FAERS Safety Report 4445871-8 (Version None)
Quarter: 2004Q3

REPORT INFORMATION
  Report Type: 
  Country: None (occurrence: None)
  Receive Date: 20040907
  Receipt Date: 20040819
  Transmission Date: 20050211
  Serious: Yes (Life-Threatening)
  Sender: FDA-Public Use
  Company Number: 2004-DE-04443DE

PATIENT
  Age: 74 Year
  Sex: Male

DRUGS (7)
  1. SPIRIVA [Suspect]
     Dosage: 1 PUF (18MCG)
     Route: 055
  2. NICOTINE [Suspect]
     Dosage: 4 MG
     Route: 048
  3. OXIS (FORMOTEROL) [Concomitant]
  4. THEOPHYLLINE [Concomitant]
  5. ENAHEXAL (ENALAPRIL MALEATE) [Concomitant]
  6. URION S [Concomitant]
  7. BERODUAL (DUOVENT) [Concomitant]

REACTIONS (2)
  - TACHYCARDIA [None]
  - TRANSIENT PSYCHOSIS [None]
